FAERS Safety Report 25237649 (Version 1)
Quarter: 2025Q2

REPORT INFORMATION
  Report Type: Spontaneous
  Country: US (occurrence: US)
  Receive Date: 20250425
  Receipt Date: 20250425
  Transmission Date: 20250717
  Serious: No
  Sender: UROGEN PHARMA
  Company Number: US-UROGEN PHARMA LTD.-2025-UGN-000039

PATIENT

DRUGS (4)
  1. JELMYTO [Suspect]
     Active Substance: MITOMYCIN
     Indication: Transitional cell cancer of the renal pelvis and ureter
     Dosage: UNK, ONCE A WEEK, LEFT KIDNEY (INSTILLATION)
     Dates: start: 20250304, end: 20250304
  2. JELMYTO [Suspect]
     Active Substance: MITOMYCIN
     Dosage: UNK, ONCE A WEEK, LEFT KIDNEY (INSTILLATION)
     Dates: start: 20250311, end: 20250311
  3. JELMYTO [Suspect]
     Active Substance: MITOMYCIN
     Dates: start: 202503, end: 202503
  4. JELMYTO [Suspect]
     Active Substance: MITOMYCIN
     Dates: start: 20250325, end: 20250325

REACTIONS (1)
  - Pruritus [Recovered/Resolved]

NARRATIVE: CASE EVENT DATE: 20250311
